FAERS Safety Report 5489355-7 (Version None)
Quarter: 2007Q4

REPORT INFORMATION
  Report Type: 
  Country: None (occurrence: None)
  Receive Date: 20071018
  Receipt Date: 20071004
  Transmission Date: 20080405
  Serious: Yes (Hospitalization, Other)
  Sender: FDA-Public Use
  Company Number: US-ELI_LILLY_AND_COMPANY-US200710002041

PATIENT
  Age: 59 Year
  Sex: Male

DRUGS (1)
  1. CIALIS [Suspect]
     Dosage: 40 MG, UNK
     Route: 048

REACTIONS (3)
  - HYPOTENSION [None]
  - OVERDOSE [None]
  - UNRESPONSIVE TO STIMULI [None]
